FAERS Safety Report 4627976-1 (Version None)
Quarter: 2005Q2

REPORT INFORMATION
  Report Type: 
  Country: None (occurrence: None)
  Receive Date: 20050401
  Receipt Date: 20050318
  Transmission Date: 20051028
  Serious: Yes (Death)
  Sender: FDA-Public Use
  Company Number: 2005S1001360

PATIENT
  Age: 81 Year
  Sex: Male

DRUGS (8)
  1. CLOZAPINE [Suspect]
     Indication: AGGRESSION
     Dosage: 100 MG; BID; PO
     Route: 048
     Dates: start: 20010101
  2. CLOZAPINE [Suspect]
     Indication: PARANOID PERSONALITY DISORDER
     Dosage: 100 MG; BID; PO
     Route: 048
     Dates: start: 20010101
  3. CARBIDOPA AND LEVODOPA [Concomitant]
  4. ROPINIROLE [Concomitant]
  5. HYDROCHLORIDE [Concomitant]
  6. RABEPRAZOLE SODIUM [Concomitant]
  7. ASCORBIC ACID [Concomitant]
  8. CYANOCOBALAMIN [Concomitant]

REACTIONS (2)
  - GENERAL PHYSICAL HEALTH DETERIORATION [None]
  - PROSTATE CANCER [None]
